FAERS Safety Report 25187294 (Version 3)
Quarter: 2025Q2

REPORT INFORMATION
  Report Type: Spontaneous
  Country: US (occurrence: US)
  Receive Date: 20250411
  Receipt Date: 20250507
  Transmission Date: 20250717
  Serious: Yes (Other)
  Sender: ROCHE
  Company Number: US-ROCHE-10000249194

PATIENT
  Age: 22 Year
  Sex: Female
  Weight: 63.5 kg

DRUGS (4)
  1. XOLAIR [Suspect]
     Active Substance: OMALIZUMAB
     Indication: Asthma
     Route: 058
  2. XOLAIR [Suspect]
     Active Substance: OMALIZUMAB
     Indication: Urticaria
     Route: 065
  3. XOLAIR [Suspect]
     Active Substance: OMALIZUMAB
     Indication: Autoimmune dermatitis
  4. XOLAIR [Suspect]
     Active Substance: OMALIZUMAB
     Indication: Anaphylactic reaction

REACTIONS (7)
  - Device defective [Unknown]
  - Device issue [Unknown]
  - Product complaint [Unknown]
  - Product dose omission issue [Unknown]
  - Off label use [Unknown]
  - Urticaria [Not Recovered/Not Resolved]
  - Anaphylactic reaction [Recovering/Resolving]

NARRATIVE: CASE EVENT DATE: 20250401
